FAERS Safety Report 5730701-4 (Version None)
Quarter: 2008Q2

REPORT INFORMATION
  Report Type: 
  Country: None (occurrence: None)
  Receive Date: 20080507
  Receipt Date: 20080425
  Transmission Date: 20081010
  Serious: Yes (Other)
  Sender: FDA-Public Use
  Company Number: BR-PFIZER INC-2007083291

PATIENT
  Sex: Male

DRUGS (2)
  1. FRONTAL XR [Suspect]
     Indication: ANXIETY
     Route: 048
     Dates: start: 20070901, end: 20070901
  2. ACETYLSALICYLIC ACID SRT [Concomitant]
     Dates: start: 20070901, end: 20070901

REACTIONS (11)
  - BLOOD CHOLESTEROL INCREASED [None]
  - CHEST DISCOMFORT [None]
  - CHEST PAIN [None]
  - DIZZINESS [None]
  - DRUG INEFFECTIVE [None]
  - HYPERTENSION [None]
  - PALLOR [None]
  - PANIC REACTION [None]
  - SENSATION OF HEAVINESS [None]
  - SOMNOLENCE [None]
  - STRESS [None]
